FAERS Safety Report 6211495-5 (Version None)
Quarter: 2009Q2

REPORT INFORMATION
  Report Type: 
  Country: None (occurrence: None)
  Receive Date: 20090528
  Receipt Date: 20090518
  Transmission Date: 20091009
  Serious: Yes (Death, Life-Threatening, Hospitalization)
  Sender: FDA-Public Use
  Company Number: 2009AP001882

PATIENT
  Age: 75 Year

DRUGS (10)
  1. ALENDRONATE SODIUM [Suspect]
     Indication: OSTEOPOROSIS
     Dosage: 70 MG; QW PO
     Route: 048
     Dates: start: 20090310, end: 20090324
  2. ASPIRIN [Concomitant]
  3. BUMETANIDE [Concomitant]
  4. CALCIUM CARBONATE (CALCIUM CARBONATE) [Concomitant]
  5. COLECALCIFEROL (COLECALCIFEROL) [Concomitant]
  6. DIGOXIN [Concomitant]
  7. LOSARTAN POTASSIUM [Concomitant]
  8. OMEPRAZOLE [Concomitant]
  9. DILTIAZEM HCL [Concomitant]
  10. TAMSULOSIN HCL [Concomitant]

REACTIONS (2)
  - STEVENS-JOHNSON SYNDROME [None]
  - TOXIC EPIDERMAL NECROLYSIS [None]
